FAERS Safety Report 5947542-5 (Version None)
Quarter: 2008Q4

REPORT INFORMATION
  Report Type: 
  Country: None (occurrence: None)
  Receive Date: 20081110
  Receipt Date: 20081101
  Transmission Date: 20090506
  Serious: Yes (Disabling)
  Sender: FDA-Public Use
  Company Number: PHHY2008FR26986

PATIENT
  Age: 58 Year
  Sex: Female

DRUGS (2)
  1. LAMISIL [Suspect]
     Dosage: 250 MG DAILY
     Dates: start: 20081030, end: 20081101
  2. TAHOR [Concomitant]

REACTIONS (9)
  - ANXIETY [None]
  - ARTHRALGIA [None]
  - BURNING SENSATION [None]
  - ERYTHEMA [None]
  - GAIT DISTURBANCE [None]
  - LEUKOPLAKIA [None]
  - MOVEMENT DISORDER [None]
  - MYALGIA [None]
  - SLEEP DISORDER [None]
